FAERS Safety Report 5309393-4 (Version None)
Quarter: 2007Q2

REPORT INFORMATION
  Report Type: 
  Country: None (occurrence: None)
  Receive Date: 20070424
  Receipt Date: 20070424
  Transmission Date: 20071010
  Serious: Yes (Other)
  Sender: FDA-Public Use
  Company Number: None

PATIENT
  Sex: Male
  Weight: 130.6359 kg

DRUGS (5)
  1. PROTONIX [Suspect]
     Indication: GASTRITIS
     Dosage: 40 MG QAM PO
     Route: 048
     Dates: start: 20070410, end: 20070412
  2. HUMALOG [Concomitant]
  3. LISINOPRIL [Concomitant]
  4. LOVASTATIN [Concomitant]
  5. THERAPEUTIC MULTIVITAMIN [Concomitant]

REACTIONS (1)
  - HYPERGLYCAEMIA [None]
